FAERS Safety Report 6820903-8 (Version None)
Quarter: 2010Q3

REPORT INFORMATION
  Report Type: 
  Country: None (occurrence: None)
  Receive Date: 20100707
  Receipt Date: 20070723
  Transmission Date: 20110219
  Serious: No
  Sender: FDA-Public Use
  Company Number: US-PFIZER INC-2007061490

PATIENT
  Sex: Female
  Weight: 72.7 kg

DRUGS (6)
  1. SERTRALINE [Suspect]
     Indication: DEPRESSED MOOD
     Dates: start: 20070710
  2. SERTRALINE [Suspect]
     Indication: ANXIETY
  3. TYLENOL PM [Suspect]
     Indication: INSOMNIA
     Dates: end: 20070701
  4. FOSAMAX [Concomitant]
  5. STOOL SOFTENER [Concomitant]
  6. ALEVE (CAPLET) [Concomitant]

REACTIONS (2)
  - HOT FLUSH [None]
  - INSOMNIA [None]
